FAERS Safety Report 8021572-4 (Version None)
Quarter: 2012Q1

REPORT INFORMATION
  Report Type: 
  Country: None (occurrence: None)
  Receive Date: 20120104
  Receipt Date: 20111227
  Transmission Date: 20120608
  Serious: Yes (Hospitalization)
  Sender: FDA-Public Use
  Company Number: US-BAYER-2011-046235

PATIENT
  Age: 29 Year
  Sex: Female
  Weight: 104.31 kg

DRUGS (11)
  1. TORADOL [Concomitant]
     Dosage: 60 MG, UNK
     Route: 030
     Dates: start: 20090303
  2. DROSPIRENONE AND ETHINYL ESTRADIOL [Suspect]
     Indication: CONTRACEPTION
     Dosage: UNK
     Dates: start: 20090201, end: 20090501
  3. STADOL [Concomitant]
  4. ULTRAM ER [Concomitant]
     Dosage: 300 MG, QD
     Route: 048
  5. FEOSOL [Concomitant]
  6. LORTAB [Concomitant]
     Dosage: 10 MG, QID
     Dates: start: 20090302, end: 20090303
  7. LISINOPRIL AND HYDROCHLOROTHIAZIDE [Concomitant]
     Indication: HYPERTENSION
  8. MECLIZINE [Concomitant]
     Dosage: 25 MG, UNK
  9. FLEXERIL [Concomitant]
     Dosage: 10 MG, TID
  10. SERTRALINE HYDROCHLORIDE [Concomitant]
     Dosage: 100 MG, QD
  11. PROCHLORPERAZINE [Concomitant]
     Dosage: 10 MG, PRN

REACTIONS (4)
  - DEFORMITY [None]
  - PAIN [None]
  - THROMBOSIS [None]
  - SUPERIOR SAGITTAL SINUS THROMBOSIS [None]
